FAERS Safety Report 23655266 (Version 1)
Quarter: 2024Q1

REPORT INFORMATION
  Report Type: Spontaneous
  Country: GB (occurrence: GB)
  Receive Date: 20240320
  Receipt Date: 20240320
  Transmission Date: 20240410
  Serious: Yes (Hospitalization, Other)
  Sender: FDA-Public Use
  Company Number: None

PATIENT
  Age: 60 Year
  Sex: Female
  Weight: 62 kg

DRUGS (9)
  1. PEMBROLIZUMAB [Suspect]
     Active Substance: PEMBROLIZUMAB
     Dosage: UNK
     Route: 042
     Dates: end: 202301
  2. LUFORBEC [Concomitant]
     Dosage: 100MCG/6MCG. 2 PUFFS TWICE
     Route: 055
     Dates: start: 20231026, end: 20240201
  3. CALCIUM CARBONATE\CHOLECALCIFEROL [Concomitant]
     Active Substance: CALCIUM CARBONATE\CHOLECALCIFEROL
     Dosage: 1500MG/400UNIT. TAKE ONE TABLET
     Dates: start: 20230922
  4. CITALOPRAM [Concomitant]
     Active Substance: CITALOPRAM\CITALOPRAM HYDROBROMIDE
     Dosage: 1 DOSAGE FORM, QD/ 10/20MG
     Dates: start: 20230530
  5. LEVOTHYROXINE [Concomitant]
     Active Substance: LEVOTHYROXINE\LEVOTHYROXINE SODIUM
     Dosage: 25/100MCG. TAKE ONE TABLET.
     Dates: start: 20230922
  6. SPIRONOLACTONE [Concomitant]
     Active Substance: SPIRONOLACTONE
     Dosage: 25 MILLIGRAM, TAKE ONE /TWO TABLET
     Dates: start: 20231026
  7. PREDNISOLONE [Concomitant]
     Active Substance: PREDNISOLONE
     Dosage: 5 MILLIGRAM. TAKE 8/9 TABLETS
     Dates: start: 20230531, end: 20240105
  8. FOLIC ACID [Concomitant]
     Active Substance: FOLIC ACID
     Dosage: 5 MG; TAKE ONE TABLET
     Dates: start: 20231129
  9. OMEPRAZOLE [Concomitant]
     Active Substance: OMEPRAZOLE
     Dosage: 20 MG, TAKE ONE/TWO CAPSUL (FORMULATION: GASTRO-INTESTINAL CAPSULE)
     Dates: start: 20230530, end: 20240105

REACTIONS (3)
  - Liver disorder [Not Recovered/Not Resolved]
  - Hepatitis [Unknown]
  - Colitis [Unknown]

NARRATIVE: CASE EVENT DATE: 20230101
